FAERS Safety Report 4871375-4 (Version None)
Quarter: 2006Q1

REPORT INFORMATION
  Report Type: 
  Country: None (occurrence: None)
  Receive Date: 20060103
  Receipt Date: 20051005
  Transmission Date: 20060701
  Serious: Yes (Hospitalization)
  Sender: FDA-Public Use
  Company Number: US-MERCK-0510USA04438

PATIENT
  Age: 40 Year
  Sex: Male
  Weight: 107 kg

DRUGS (2)
  1. VIOXX [Suspect]
     Indication: CONNECTIVE TISSUE DISORDER
     Route: 048
     Dates: start: 20010913, end: 20030530
  2. VIOXX [Suspect]
     Route: 048
     Dates: start: 20010913, end: 20030530

REACTIONS (2)
  - CONVULSION [None]
  - DEEP VEIN THROMBOSIS [None]
